FAERS Safety Report 13025851 (Version 1)
Quarter: 2016Q4

REPORT INFORMATION
  Report Type: Spontaneous
  Country: GB (occurrence: GB)
  Receive Date: 20161214
  Receipt Date: 20161214
  Transmission Date: 20170207
  Serious: Yes (Other)
  Sender: FDA-Public Use
  Company Number: GB-AMGEN-GBRSP2016175427

PATIENT
  Age: 87 Year
  Sex: Female
  Weight: 63 kg

DRUGS (3)
  1. PROLIA [Suspect]
     Active Substance: DENOSUMAB
     Indication: OSTEOPOROSIS
     Dosage: 60 MG, UNK
     Route: 058
     Dates: start: 20130628
  2. DIHYDROCODEINE [Concomitant]
     Active Substance: DIHYDROCODEINE
     Indication: ARTHRITIS
     Dosage: 30 MG, AS NECESSARY
     Route: 048
  3. CELEBREX [Concomitant]
     Active Substance: CELECOXIB
     Indication: ARTHRITIS
     Route: 048

REACTIONS (1)
  - Muscle twitching [Recovering/Resolving]

NARRATIVE: CASE EVENT DATE: 201607
